FAERS Safety Report 4586943-7 (Version None)
Quarter: 2005Q1

REPORT INFORMATION
  Report Type: 
  Country: None (occurrence: None)
  Receive Date: 20050218
  Receipt Date: 20050210
  Transmission Date: 20050727
  Serious: Yes (Hospitalization)
  Sender: FDA-Public Use
  Company Number: FR-BRISTOL-MYERS SQUIBB COMPANY-12865846

PATIENT
  Age: 49 Year
  Sex: Male
  Weight: 75 kg

DRUGS (8)
  1. ENDOXAN [Suspect]
     Route: 042
     Dates: start: 20050105, end: 20050105
  2. CORTANCYL [Suspect]
     Route: 048
     Dates: end: 20050101
  3. SOLU-MEDROL [Suspect]
     Route: 042
     Dates: start: 20050103, end: 20050105
  4. EPIRUBICIN [Suspect]
     Route: 042
     Dates: start: 20050103, end: 20050103
  5. ETOPOSIDE TEVA [Suspect]
     Route: 042
     Dates: start: 20050103, end: 20050103
  6. CISPLATINE MERCK [Suspect]
     Route: 042
     Dates: start: 20050104, end: 20050104
  7. PRIMPERAN TAB [Concomitant]
     Route: 042
     Dates: start: 20050103, end: 20050105
  8. ZOPHREN [Concomitant]
     Route: 042
     Dates: start: 20050103, end: 20050105

REACTIONS (4)
  - HYPOCALCAEMIA [None]
  - HYPOKALAEMIA [None]
  - HYPONATRAEMIA [None]
  - NEPHROPATHY [None]
